FAERS Safety Report 25534710 (Version 1)
Quarter: 2025Q3

REPORT INFORMATION
  Report Type: Spontaneous
  Country: US (occurrence: None)
  Receive Date: 20250709
  Receipt Date: 20250709
  Transmission Date: 20251021
  Serious: Yes (Death)
  Sender: FDA-CTU
  Company Number: None

PATIENT
  Age: 28 Year
  Sex: Female
  Weight: 55 kg

DRUGS (2)
  1. MITAPIVAT [Suspect]
     Active Substance: MITAPIVAT
  2. BACTRIM [Suspect]
     Active Substance: SULFAMETHOXAZOLE\TRIMETHOPRIM
     Indication: Sickle cell anaemia
     Dosage: FREQUENCY : TWICE A DAY;?
     Route: 002
     Dates: start: 20250326

REACTIONS (9)
  - Diarrhoea [None]
  - Hypertransaminasaemia [None]
  - Pain [None]
  - Urinary tract infection [None]
  - Diarrhoea infectious [None]
  - Hypoxia [None]
  - Tachycardia [None]
  - Atelectasis [None]
  - Cardiomegaly [None]

NARRATIVE: CASE EVENT DATE: 20250628
